FAERS Safety Report 8525743-X (Version None)
Quarter: 2012Q3

REPORT INFORMATION
  Report Type: 
  Country: None (occurrence: None)
  Receive Date: 20120720
  Receipt Date: 20120703
  Transmission Date: 20120928
  Serious: No
  Sender: FDA-Public Use
  Company Number: JP-009507513-1205USA04617

PATIENT

DRUGS (9)
  1. AMARYL [Concomitant]
  2. METFORMIN HCL [Concomitant]
     Dosage: UNK
     Dates: start: 20120518
  3. GLYBURIDE [Concomitant]
     Dosage: UNK
     Dates: start: 20111108
  4. ACTOS [Concomitant]
  5. BASEN [Concomitant]
  6. SODIUM POLYSTYRENE SULFONATE [Concomitant]
     Dosage: UNK
     Dates: start: 20120309
  7. NESINA [Suspect]
     Dosage: UNK
     Dates: start: 20120507, end: 20120518
  8. SITAGLIPTIN PHOSPHATE [Suspect]
     Indication: TYPE 2 DIABETES MELLITUS
     Dosage: 50 MG, QD
     Route: 048
     Dates: start: 20120417, end: 20120423
  9. VOGLIBOSE [Concomitant]
     Dosage: UNK
     Dates: start: 20111108

REACTIONS (1)
  - GLOSSITIS [None]
